FAERS Safety Report 18095034 (Version 1)
Quarter: 2020Q3

REPORT INFORMATION
  Report Type: Report from Study
  Country: DE (occurrence: DE)
  Receive Date: 20200731
  Receipt Date: 20200731
  Transmission Date: 20201103
  Serious: Yes (Death)
  Sender: FDA-Public Use
  Company Number: DE-AMGEN-DEUNI2020122425

PATIENT
  Age: 86 Year
  Sex: Female

DRUGS (1)
  1. ENBREL [Suspect]
     Active Substance: ETANERCEPT
     Indication: RHEUMATOID ARTHRITIS
     Dosage: 50 MG, 1X/WEEK
     Route: 065
     Dates: start: 20160108

REACTIONS (1)
  - Death [Fatal]

NARRATIVE: CASE EVENT DATE: 20200601
